FAERS Safety Report 5045222-4 (Version None)
Quarter: 2006Q3

REPORT INFORMATION
  Report Type: 
  Country: None (occurrence: None)
  Receive Date: 20060707
  Receipt Date: 20060629
  Transmission Date: 20061208
  Serious: Yes (Other)
  Sender: FDA-Public Use
  Company Number: JP-JPN-A200602408

PATIENT
  Age: 31 Year
  Sex: Male

DRUGS (4)
  1. EPIVIR [Suspect]
     Indication: HIV INFECTION
     Route: 048
     Dates: start: 19990114
  2. RETROVIR [Suspect]
     Indication: HIV INFECTION
     Route: 048
     Dates: start: 19990114
  3. VIRACEPT [Suspect]
     Indication: HIV INFECTION
     Route: 048
     Dates: start: 19990202
  4. CONFACT F [Concomitant]
     Indication: FACTOR VIII DEFICIENCY
     Dosage: 1000IU IN THE MORNING
     Route: 042
     Dates: start: 20050401

REACTIONS (2)
  - HAEMOPHILIA [None]
  - HAEMORRHAGIC DIATHESIS [None]
